FAERS Safety Report 5425519-6 (Version None)
Quarter: 2007Q3

REPORT INFORMATION
  Report Type: 
  Country: None (occurrence: None)
  Receive Date: 20070824
  Receipt Date: 20070815
  Transmission Date: 20080115
  Serious: Yes (Other)
  Sender: FDA-Public Use
  Company Number: AR-PFIZER INC-2007066468

PATIENT
  Sex: Male
  Weight: 101 kg

DRUGS (2)
  1. CARDURA [Suspect]
     Indication: HYPERTENSION
     Route: 048
  2. LOSARTAN POTASSIUM [Concomitant]
     Route: 048

REACTIONS (1)
  - BLOOD PRESSURE INCREASED [None]
